FAERS Safety Report 9688457 (Version 2)
Quarter: 2013Q4

REPORT INFORMATION
  Report Type: Spontaneous
  Country: FR (occurrence: FR)
  Receive Date: 20131114
  Receipt Date: 20131128
  Transmission Date: 20140711
  Serious: Yes (Hospitalization, Other)
  Sender: FDA-Public Use
  Company Number: FR-009507513-1311FRA001004

PATIENT
  Age: 78 Year
  Sex: Male

DRUGS (9)
  1. EMEND [Suspect]
     Indication: PROPHYLAXIS
     Dosage: 125 MG, QD
     Route: 048
     Dates: start: 20130925, end: 20130925
  2. HOLOXAN [Suspect]
     Indication: SOFT TISSUE CANCER
     Dosage: UNK
     Route: 041
     Dates: start: 20130905, end: 20130927
  3. SOLUPRED [Concomitant]
  4. INEXIUM [Concomitant]
  5. TOPALGIC (SUPROFEN) [Concomitant]
  6. FUROSEMIDE [Concomitant]
  7. DIFFU-K [Concomitant]
  8. DEXERYL CREAM [Concomitant]
  9. ZOPHREN (ONDANSETRON HYDROCHLORIDE) [Suspect]

REACTIONS (1)
  - Encephalopathy [Not Recovered/Not Resolved]
